FAERS Safety Report 17454470 (Version 1)
Quarter: 2020Q1

REPORT INFORMATION
  Report Type: Spontaneous
  Country: IN (occurrence: IN)
  Receive Date: 20200225
  Receipt Date: 20200225
  Transmission Date: 20200409
  Serious: Yes (Other)
  Sender: FDA-Public Use
  Company Number: IN-SUN PHARMACEUTICAL INDUSTRIES LTD-2020R1-237603

PATIENT
  Age: 62 Year
  Sex: Female

DRUGS (1)
  1. TRIAMCINOLONE [Suspect]
     Active Substance: TRIAMCINOLONE
     Indication: INFLAMMATION
     Dosage: 0.5 CC OF TRIAMCINOLONE ACETONIDE SUSPENSION
     Route: 065

REACTIONS (2)
  - Keratitis fungal [Recovered/Resolved]
  - Necrotising scleritis [Recovered/Resolved]
